FAERS Safety Report 16777417 (Version 1)
Quarter: 2019Q3

REPORT INFORMATION
  Report Type: Report from Study
  Country: ES (occurrence: ES)
  Receive Date: 20190905
  Receipt Date: 20190905
  Transmission Date: 20191005
  Serious: Yes (Other)
  Sender: FDA-Public Use
  Company Number: ES-MYLANLABS-2019M1083128

PATIENT
  Age: 71 Year
  Sex: Male

DRUGS (16)
  1. FENTANYL. [Suspect]
     Active Substance: FENTANYL
     Dosage: 2 DAILY DOSES OF 400 MCG
     Route: 060
  2. FENTANYL. [Suspect]
     Active Substance: FENTANYL
     Dosage: 50 MICROGRAM/H/72H
     Route: 062
  3. PEMETREXED. [Concomitant]
     Active Substance: PEMETREXED
     Indication: LUNG ADENOCARCINOMA STAGE IV
     Dosage: UNKNOWN
     Route: 065
     Dates: start: 2018
  4. FENTANYL. [Suspect]
     Active Substance: FENTANYL
     Indication: CANCER PAIN
     Dosage: 75 MICROGRAM/H/72H
     Route: 062
  5. MORPHINE [Suspect]
     Active Substance: MORPHINE
     Dosage: 40 MILLIGRAM PER QD
     Route: 042
  6. GABAPENTIN. [Concomitant]
     Active Substance: GABAPENTIN
     Indication: NEURALGIA
     Dosage: 300 MILLIGRAM 300 MG IN PROGRESSIVE INCREASE UP TO Q8H
     Route: 048
     Dates: start: 2018
  7. CARBOPLATIN. [Concomitant]
     Active Substance: CARBOPLATIN
     Indication: LUNG ADENOCARCINOMA STAGE IV
     Dosage: UNKNOWN
     Route: 065
     Dates: start: 2018
  8. PECFENT [Suspect]
     Active Substance: FENTANYL CITRATE
     Indication: BREAKTHROUGH PAIN
     Dosage: 100 MICROGRAM, AS RESCUE
     Route: 045
  9. FENTANYL. [Suspect]
     Active Substance: FENTANYL
     Indication: BREAKTHROUGH PAIN
     Dosage: 400 MICROGRAM EVERY 4 HOURS,PRN
     Route: 002
  10. MST CONTINUS [Suspect]
     Active Substance: MORPHINE SULFATE
     Dosage: 130 MILLIGRAM, BID
     Route: 048
  11. IBUPROFEN. [Concomitant]
     Active Substance: IBUPROFEN
     Indication: CANCER PAIN
     Dosage: 600 MILLIGRAM, Q8H
     Route: 048
     Dates: start: 2018
  12. MST CONTINUS [Suspect]
     Active Substance: MORPHINE SULFATE
     Dosage: PROGRESSIVE INCREASE UP TO 160 MG/12 HOURS
     Route: 048
     Dates: start: 2018
  13. MORPHINE [Suspect]
     Active Substance: MORPHINE
     Indication: CANCER PAIN
     Dosage: 90 MILLIGRAM PER QD
     Route: 042
  14. DULOXETINE. [Concomitant]
     Active Substance: DULOXETINE
     Indication: NEURALGIA
     Dosage: 60 MILLIGRAM PER QD
     Route: 048
     Dates: start: 2018
  15. METAMIZOLE [Concomitant]
     Active Substance: METAMIZOLE
     Indication: CANCER PAIN
     Dosage: 575 MILLIGRAM, Q8H
     Route: 048
     Dates: start: 2018
  16. MST CONTINUS [Suspect]
     Active Substance: MORPHINE SULFATE
     Indication: CANCER PAIN
     Dosage: 120 MILLIGRAM, BID
     Route: 048

REACTIONS (2)
  - Drug tolerance decreased [Unknown]
  - Toxicity to various agents [Unknown]

NARRATIVE: CASE EVENT DATE: 201812
